FAERS Safety Report 6766701-5 (Version None)
Quarter: 2010Q2

REPORT INFORMATION
  Report Type: 
  Country: None (occurrence: None)
  Receive Date: 20100609
  Receipt Date: 20100525
  Transmission Date: 20101027
  Serious: Yes (Hospitalization)
  Sender: FDA-Public Use
  Company Number: CIP10001189

PATIENT
  Age: 58 Year
  Sex: Female

DRUGS (1)
  1. ACTONEL [Suspect]
     Indication: OSTEOARTHRITIS
     Dosage: 150 MG MONTHLY (4TH DAY EACH MONTH), ORAL
     Route: 048

REACTIONS (3)
  - HEADACHE [None]
  - RENAL COLIC [None]
  - RENAL DISORDER [None]
